FAERS Safety Report 8584511-3 (Version None)
Quarter: 2012Q3

REPORT INFORMATION
  Report Type: 
  Country: None (occurrence: None)
  Receive Date: 20120810
  Receipt Date: 20120806
  Transmission Date: 20120928
  Serious: No
  Sender: FDA-Public Use
  Company Number: US-PFIZER INC-2012126343

PATIENT
  Sex: Female

DRUGS (3)
  1. LYRICA [Suspect]
     Indication: BREAST PAIN
     Dosage: 100 MG, 3X/DAY
     Route: 048
     Dates: start: 20111201
  2. LYRICA [Suspect]
     Dosage: UNK
     Route: 048
     Dates: start: 20110701
  3. LYRICA [Suspect]
     Indication: NEURALGIA
     Dosage: UNK
     Route: 048
     Dates: end: 20120401

REACTIONS (4)
  - AMENORRHOEA [None]
  - MUSCLE SPASMS [None]
  - RETCHING [None]
  - ABDOMINAL PAIN UPPER [None]
